FAERS Safety Report 4565185-5 (Version None)
Quarter: 2005Q1

REPORT INFORMATION
  Report Type: 
  Country: None (occurrence: None)
  Receive Date: 20050127
  Receipt Date: 20050127
  Transmission Date: 20050727
  Serious: Yes (Other)
  Sender: FDA-Public Use
  Company Number: None

PATIENT
  Age: 37 Year
  Sex: Female
  Weight: 93 kg

DRUGS (3)
  1. OXACILLIN [Suspect]
     Indication: DIABETES MELLITUS
     Dosage: 2 GM IV Q 6 H
     Route: 042
     Dates: start: 20041228, end: 20050124
  2. OXACILLIN [Suspect]
     Indication: GANGRENE
     Dosage: 2 GM IV Q 6 H
     Route: 042
     Dates: start: 20041228, end: 20050124
  3. OXACILLIN [Suspect]
     Indication: RENAL TRANSPLANT
     Dosage: 2 GM IV Q 6 H
     Route: 042
     Dates: start: 20041228, end: 20050124

REACTIONS (1)
  - BLOOD CREATININE INCREASED [None]
